FAERS Safety Report 6714421-5 (Version None)
Quarter: 2010Q2

REPORT INFORMATION
  Report Type: 
  Country: None (occurrence: None)
  Receive Date: 20100506
  Receipt Date: 20100429
  Transmission Date: 20101027
  Serious: Yes (Other)
  Sender: FDA-Public Use
  Company Number: US-ABBOTT-10P-163-0640021-00

PATIENT
  Sex: Female

DRUGS (10)
  1. HUMIRA [Suspect]
     Indication: CROHN'S DISEASE
     Dates: start: 20040101
  2. ALENDRONATE [Concomitant]
     Indication: OSTEOPOROSIS
  3. LOPRESSOR [Concomitant]
     Indication: HYPERTENSION
  4. LORAZEPAM [Concomitant]
     Indication: DRUG USE FOR UNKNOWN INDICATION
  5. HYDROCODONE BITARTRATE [Concomitant]
     Indication: PAIN MANAGEMENT
  6. PENTASA [Concomitant]
     Indication: CROHN'S DISEASE
  7. IMODIUM [Concomitant]
     Indication: DIARRHOEA
  8. PRILOSEC [Concomitant]
     Indication: DYSPEPSIA
  9. CYMBALTA [Concomitant]
     Indication: DRUG USE FOR UNKNOWN INDICATION
  10. COMBIVENT [Concomitant]
     Indication: CHRONIC OBSTRUCTIVE PULMONARY DISEASE

REACTIONS (6)
  - ARTHROPATHY [None]
  - CROHN'S DISEASE [None]
  - DRUG DOSE OMISSION [None]
  - MOBILITY DECREASED [None]
  - MUSCULOSKELETAL PAIN [None]
  - SINUSITIS [None]
